FAERS Safety Report 13260280 (Version 1)
Quarter: 2017Q1

REPORT INFORMATION
  Report Type: Report from Study
  Country: DE (occurrence: DE)
  Receive Date: 20170222
  Receipt Date: 20170222
  Transmission Date: 20170428
  Serious: Yes (Other)
  Sender: FDA-Public Use
  Company Number: DE-PFIZER INC-2017003397

PATIENT

DRUGS (5)
  1. REGORAFENIB [Suspect]
     Active Substance: REGORAFENIB
     Indication: COLORECTAL CANCER METASTATIC
     Dosage: 160 MG, CYCLIC (160 MG ONCE DAILY DAYS 4-10 AND 18-24 OF EACH CYCLE)
     Route: 048
  2. IRINOTECAN HCL [Suspect]
     Active Substance: IRINOTECAN HYDROCHLORIDE
     Indication: COLORECTAL CANCER METASTATIC
     Dosage: 180 MG/M2, CYCLIC (ON DAYS 1 AND 15 OF EACH 28-DAY CYCLE)
     Route: 042
  3. FLUOROURACIL. [Suspect]
     Active Substance: FLUOROURACIL
     Indication: COLORECTAL CANCER METASTATIC
     Dosage: 400 MG/M2, CYCLIC (ON DAYS 1 AND 15 OF EACH 28-DAY CYCLE)
     Route: 040
  4. FLUOROURACIL. [Suspect]
     Active Substance: FLUOROURACIL
     Dosage: 2400 MG/M2, CYCLIC (ON DAYS 1 AND 15 OF EACH 28-DAY CYCLE)
     Route: 042
  5. CALCIUM FOLINATE [Suspect]
     Active Substance: LEUCOVORIN CALCIUM
     Indication: COLORECTAL CANCER METASTATIC
     Dosage: 400 MG/M2, CYCLIC (ON DAYS 1 AND 15 OF EACH 28-DAY CYCLE)
     Route: 042

REACTIONS (1)
  - Febrile neutropenia [Unknown]
